FAERS Safety Report 18287220 (Version 1)
Quarter: 2020Q3

REPORT INFORMATION
  Report Type: Spontaneous
  Country: US (occurrence: US)
  Receive Date: 20200921
  Receipt Date: 20200921
  Transmission Date: 20201103
  Serious: No
  Sender: FDA-Public Use
  Company Number: NVSC2020US256784

PATIENT
  Age: 89 Year
  Sex: Female

DRUGS (1)
  1. VOLTAREN [Suspect]
     Active Substance: DICLOFENAC SODIUM
     Indication: PAIN
     Dosage: UNK UNK, BID
     Route: 065
     Dates: start: 20200908, end: 20200915

REACTIONS (2)
  - Off label use [Unknown]
  - Product administered at inappropriate site [Unknown]
